FAERS Safety Report 7631495-8 (Version None)
Quarter: 2011Q3

REPORT INFORMATION
  Report Type: 
  Country: None (occurrence: None)
  Receive Date: 20110725
  Receipt Date: 20110714
  Transmission Date: 20111222
  Serious: Yes (Death, Hospitalization)
  Sender: FDA-Public Use
  Company Number: US-GENZYME-CLOF-1001625

PATIENT
  Sex: Male
  Weight: 115.2 kg

DRUGS (27)
  1. PHENERGAN HCL [Concomitant]
     Indication: VOMITING
  2. ROBITUSSIN DM [Concomitant]
     Indication: COUGH
     Dosage: 10 ML, Q6HRS PRN
     Route: 048
  3. MAGNESIUM OXIDE [Concomitant]
     Indication: MINERAL SUPPLEMENTATION
     Dosage: 1000 MG, BID HELD
     Route: 048
  4. FIORICET [Concomitant]
     Indication: HEADACHE
     Dosage: 1 TAB Q6HRS PRN
     Route: 048
  5. PROGRAF [Concomitant]
     Indication: PROPHYLAXIS AGAINST GRAFT VERSUS HOST DISEASE
     Dosage: 2 MG, QD IN A.M.
     Route: 048
  6. TRAMADOL HCL [Concomitant]
     Indication: PAIN
     Dosage: 50 MG, Q 12HRS PRN
     Route: 048
  7. FOSCARNET [Concomitant]
     Indication: CYTOMEGALOVIRUS TEST
  8. BUSULFAN [Suspect]
     Indication: ACUTE MYELOID LEUKAEMIA
     Dosage: 1715 MG, UNK
     Route: 042
     Dates: start: 20110405, end: 20110410
  9. PEPCID [Concomitant]
     Indication: DYSPEPSIA
     Dosage: 40 MG, QD PRN
     Route: 048
  10. COREG [Concomitant]
     Indication: BLOOD PRESSURE
     Dosage: 25 MG, Q12HR
     Route: 048
  11. LYRICA [Concomitant]
     Indication: NEURALGIA
     Dosage: 100 MG, TID
     Route: 048
  12. FLUDARA [Suspect]
     Indication: ACUTE MYELOID LEUKAEMIA
     Dosage: 72 MG, QD X 4
     Route: 042
     Dates: start: 20110405, end: 20110410
  13. LOVENOX [Concomitant]
     Indication: THROMBOSIS
     Dosage: 160 MG, QD HELD
     Route: 058
  14. CLARITIN [Concomitant]
     Indication: HYPERSENSITIVITY
     Dosage: 10 MG, QD
     Route: 048
  15. HEPARIN LOCK-FLUSH [Concomitant]
     Indication: CENTRAL VENOUS CATHETERISATION
     Dosage: 200 U, QD
     Route: 042
  16. VALTREX [Concomitant]
     Indication: INFECTION PROPHYLAXIS
     Dosage: 500 MG, QD
     Route: 048
  17. COMPAZINE [Concomitant]
     Indication: VOMITING
  18. TOPAMAX [Concomitant]
     Indication: HEADACHE
     Dosage: 100 MG QS
     Route: 048
  19. VFEND [Concomitant]
     Indication: INFECTION PROPHYLAXIS
     Dosage: 200 MG, BID
     Route: 048
  20. CLOLAR [Suspect]
     Indication: ACUTE MYELOID LEUKAEMIA
     Dosage: 24 MG, QD X 4
     Route: 042
     Dates: start: 20110405, end: 20110410
  21. COMPAZINE [Concomitant]
     Indication: NAUSEA
     Dosage: 10 MG, Q6HRS PRN
     Route: 048
  22. PROCARDIA XL [Concomitant]
     Indication: BLOOD PRESSURE
     Dosage: 30 MG, QD
     Route: 048
  23. PROGRAF [Concomitant]
     Dosage: 3 MG, QD IN EVENING
     Route: 048
  24. FOSCARNET [Concomitant]
     Indication: ABDOMINAL DISCOMFORT
  25. PHENERGAN HCL [Concomitant]
     Indication: NAUSEA
     Dosage: 25 MG, Q8HRS PRN
     Route: 048
  26. SALT AND SODA MOUTHWASH [Concomitant]
     Indication: PRODUCT USED FOR UNKNOWN INDICATION
     Dosage: 10 ML, BID SWISH + SPIT
     Route: 048
  27. ZESTRIL [Concomitant]
     Indication: BLOOD PRESSURE
     Dosage: 40 MG, QD
     Route: 048

REACTIONS (2)
  - RESPIRATORY FAILURE [None]
  - PNEUMONIA [None]
